FAERS Safety Report 16125219 (Version 3)
Quarter: 2019Q2

REPORT INFORMATION
  Report Type: Spontaneous
  Country: RU (occurrence: RU)
  Receive Date: 20190327
  Receipt Date: 20190425
  Transmission Date: 20190711
  Serious: Yes (Other)
  Sender: FDA-Public Use
  Company Number: PHHY2019RU065650

PATIENT
  Age: 83 Year
  Sex: Female

DRUGS (1)
  1. AZOPT [Suspect]
     Active Substance: BRINZOLAMIDE
     Indication: GLAUCOMA
     Dosage: UNK
     Route: 047
     Dates: start: 20190210, end: 20190221

REACTIONS (12)
  - Haemoglobin decreased [Recovering/Resolving]
  - Nausea [Recovering/Resolving]
  - Red blood cell count decreased [Unknown]
  - Dizziness [Recovering/Resolving]
  - Stevens-Johnson syndrome [Unknown]
  - Hypertension [Unknown]
  - Haematocrit decreased [Unknown]
  - Arrhythmia [Recovered/Resolved]
  - Dyspnoea [Recovering/Resolving]
  - Incorrect dose administered [Recovering/Resolving]
  - Chest pain [Unknown]
  - Anaemia [Unknown]
